FAERS Safety Report 7061772-3 (Version None)
Quarter: 2010Q4

REPORT INFORMATION
  Report Type: 
  Country: None (occurrence: None)
  Receive Date: 20101026
  Receipt Date: 20100907
  Transmission Date: 20110411
  Serious: No
  Sender: FDA-Public Use
  Company Number: US-BAYER-201021211BCC

PATIENT
  Age: 81 Year
  Sex: Female
  Weight: 72 kg

DRUGS (9)
  1. ALEVE (CAPLET) [Suspect]
     Indication: BACK PAIN
     Dosage: TOTAL DAILY DOSE: 440 MG  UNIT DOSE: 220 MG
     Route: 048
  2. METFORMIN [Concomitant]
     Route: 065
  3. GLYBURIDE [Concomitant]
     Route: 065
  4. LIPITOR [Concomitant]
     Route: 065
  5. HYZAAR [Concomitant]
     Route: 065
  6. NORVASC [Concomitant]
     Route: 065
  7. CLONIDINE [Concomitant]
     Route: 065
  8. VITAMIN E [Concomitant]
     Route: 065
  9. VITAMIN B-12 [Concomitant]
     Route: 065

REACTIONS (1)
  - BACK PAIN [None]
